FAERS Safety Report 12851556 (Version 4)
Quarter: 2016Q4

REPORT INFORMATION
  Report Type: Spontaneous
  Country: US (occurrence: US)
  Receive Date: 20161017
  Receipt Date: 20161108
  Transmission Date: 20170207
  Serious: Yes (Hospitalization)
  Sender: FDA-Public Use
  Company Number: US-GE HEALTHCARE MEDICAL DIAGNOSTICS-OMPQ-PR-1610S-1826

PATIENT
  Age: 50 Year
  Sex: Female

DRUGS (13)
  1. OMNIPAQUE [Suspect]
     Active Substance: IOHEXOL
     Indication: DIAGNOSTIC PROCEDURE
  2. ALBUTEROL INHALER [Concomitant]
     Active Substance: ALBUTEROL
     Dates: start: 20160407
  3. VICODIN [Concomitant]
     Active Substance: ACETAMINOPHEN\HYDROCODONE BITARTRATE
     Dates: start: 20151219
  4. OXYCODON [Concomitant]
     Active Substance: OXYCODONE
     Dates: start: 20151219
  5. PRILOSEC [Concomitant]
     Active Substance: OMEPRAZOLE MAGNESIUM
     Dates: start: 20160921
  6. FLUORIDE BOOSTER FOR TEETH [Concomitant]
     Dates: start: 20141211
  7. LORAZEPAM. [Concomitant]
     Active Substance: LORAZEPAM
     Indication: ANXIETY
     Dates: start: 20160624
  8. LINZESS [Concomitant]
     Active Substance: LINACLOTIDE
     Dates: start: 20160831
  9. OMNIPAQUE [Suspect]
     Active Substance: IOHEXOL
     Indication: NECK MASS
     Route: 042
     Dates: start: 20161007, end: 20161007
  10. BENADRYL [Concomitant]
     Active Substance: DIPHENHYDRAMINE HYDROCHLORIDE
     Dates: start: 20161008
  11. PRISTIQ EXTENDED-RELEASE [Concomitant]
     Active Substance: DESVENLAFAXINE SUCCINATE
     Dates: start: 20160721
  12. COREG [Concomitant]
     Active Substance: CARVEDILOL
     Dates: start: 20160713
  13. VYVANSE [Concomitant]
     Active Substance: LISDEXAMFETAMINE DIMESYLATE
     Dates: start: 20160923

REACTIONS (1)
  - Anaphylactic reaction [Recovered/Resolved]

NARRATIVE: CASE EVENT DATE: 20161007
